FAERS Safety Report 7734165-0 (Version None)
Quarter: 2011Q3

REPORT INFORMATION
  Report Type: 
  Country: None (occurrence: None)
  Receive Date: 20110907
  Receipt Date: 20110829
  Transmission Date: 20111222
  Serious: Yes (Other)
  Sender: FDA-Public Use
  Company Number: BE-SANOFI-AVENTIS-2011SA037738

PATIENT
  Age: 14 Year
  Sex: Female

DRUGS (7)
  1. LEVOFLOXACIN [Suspect]
     Indication: GASTROINTESTINAL INFECTION
     Route: 065
  2. MIDAZOLAM HCL [Concomitant]
     Dosage: START DATE:- A COUPLE OF YEARS AGO (NOS)
  3. ANTISPASMODICS/ ANTICHOLINERGICS [Concomitant]
     Dosage: START DATE:- A COUPLE OF YEARS AGO (NOS)
  4. DIPROPHOS /BEL/ [Concomitant]
  5. SCOPOLAMINE [Concomitant]
     Dosage: START DATE:- A COUPLE OF YEARS AGO (NOS)
  6. DEMEROL [Suspect]
     Indication: GASTROINTESTINAL INFECTION
     Dosage: FORM: INFUSION
     Route: 065
  7. LEVOFLOXACIN [Suspect]
     Indication: DIARRHOEA
     Route: 065

REACTIONS (8)
  - BALANCE DISORDER [None]
  - PYREXIA [None]
  - FATIGUE [None]
  - DYSURIA [None]
  - PARAESTHESIA [None]
  - MUSCLE ATROPHY [None]
  - DIPLEGIA [None]
  - DYSPHAGIA [None]
